FAERS Safety Report 17235249 (Version 2)
Quarter: 2020Q1

REPORT INFORMATION
  Report Type: Spontaneous
  Country: GB (occurrence: GB)
  Receive Date: 20200106
  Receipt Date: 20200109
  Transmission Date: 20200409
  Serious: Yes (Hospitalization, Other)
  Sender: FDA-Public Use
  Company Number: GB-TEVA-2019-GB-1162624

PATIENT
  Age: 13 Year
  Sex: Male

DRUGS (18)
  1. CYCLIZINE [Concomitant]
     Active Substance: CYCLIZINE
  2. LENVATINIB [Suspect]
     Active Substance: LENVATINIB
     Indication: OSTEOSARCOMA
     Dosage: 13 MG
     Route: 048
     Dates: start: 20180313, end: 20180404
  3. METOCLOPRAMIDE. [Concomitant]
     Active Substance: METOCLOPRAMIDE
  4. ENALAPRIL [Concomitant]
     Active Substance: ENALAPRIL
  5. MOVICOL [Concomitant]
     Active Substance: POLYETHYLENE GLYCOL 3350\POTASSIUM CHLORIDE\SODIUM BICARBONATE\SODIUM CHLORIDE
  6. LENVATINIB [Suspect]
     Active Substance: LENVATINIB
     Dosage: 24 MG
     Route: 048
     Dates: start: 20170911, end: 20180404
  7. DEXAMETHASONE. [Concomitant]
     Active Substance: DEXAMETHASONE
  8. PARACETAMOL [Concomitant]
     Active Substance: ACETAMINOPHEN
  9. ETOPOSIDE. [Suspect]
     Active Substance: ETOPOSIDE
     Indication: OSTEOSARCOMA
     Dosage: STRENGTH: 20 MG/ML; 100 MG/M2 ON DAYS 1-3 OF EVERY 21 DAY CYCLE FOR 5 CYCLES;
     Route: 042
     Dates: start: 20170911, end: 20171206
  10. ONDANSETRON [Concomitant]
     Active Substance: ONDANSETRON
  11. APREPITANT. [Concomitant]
     Active Substance: APREPITANT
  12. LENVATINIB [Suspect]
     Active Substance: LENVATINIB
     Dosage: 18 MG
     Route: 048
     Dates: start: 20171114, end: 20171205
  13. LENVATINIB [Suspect]
     Active Substance: LENVATINIB
     Dosage: 12 MG
     Route: 048
     Dates: start: 20180212, end: 20180218
  14. IFOSFAMIDE. [Suspect]
     Active Substance: IFOSFAMIDE
     Indication: OSTEOSARCOMA
     Dosage: 3000 MG/M2
     Route: 042
     Dates: start: 20170911, end: 20171204
  15. DOCUSATE [Concomitant]
     Active Substance: DOCUSATE
  16. LENVATINIB [Suspect]
     Active Substance: LENVATINIB
     Dosage: 19 MG
     Route: 048
     Dates: start: 20170927, end: 20171113
  17. LENVATINIB [Suspect]
     Active Substance: LENVATINIB
     Dosage: 18 MG
     Route: 048
     Dates: start: 20171207, end: 20180125
  18. LORAZEPAM. [Concomitant]
     Active Substance: LORAZEPAM

REACTIONS (10)
  - Febrile neutropenia [Recovered/Resolved]
  - Toxic encephalopathy [Recovered/Resolved]
  - Arthralgia [Unknown]
  - Vomiting [Recovered/Resolved]
  - Anaemia [Unknown]
  - Thrombocytopenia [Recovered/Resolved]
  - Epistaxis [Recovered/Resolved]
  - Stomatitis [Recovered/Resolved]
  - Diarrhoea [Recovered/Resolved]
  - Off label use [Unknown]

NARRATIVE: CASE EVENT DATE: 20171124
